FAERS Safety Report 8525752 (Version 2)
Quarter: 2013Q4

REPORT INFORMATION
  Report Type: Spontaneous
  Country: US (occurrence: US)
  Receive Date: 20120423
  Receipt Date: 20131118
  Transmission Date: 20140711
  Serious: No
  Sender: FDA-Public Use
  Company Number: US-JNJFOC-20120405276

PATIENT
  Sex: Female
  Weight: 78.02 kg

DRUGS (4)
  1. DURAGESIC [Suspect]
     Indication: BACK PAIN
     Route: 062
  2. DURAGESIC [Suspect]
     Indication: BACK PAIN
     Route: 062
  3. DURAGESIC [Suspect]
     Indication: BACK PAIN
     Route: 062
     Dates: start: 2011
  4. KLONOPIN [Concomitant]
     Indication: PANIC ATTACK
     Route: 048

REACTIONS (4)
  - Drug ineffective [Recovered/Resolved]
  - Product adhesion issue [Unknown]
  - Breakthrough pain [Not Recovered/Not Resolved]
  - Wrong technique in drug usage process [Recovered/Resolved]
